FAERS Safety Report 24021764 (Version 1)
Quarter: 2024Q2

REPORT INFORMATION
  Report Type: Spontaneous
  Country: US (occurrence: US)
  Receive Date: 20240627
  Receipt Date: 20240627
  Transmission Date: 20240716
  Serious: No
  Sender: FDA-Public Use
  Company Number: US-ROCHE-3510354

PATIENT
  Age: 78 Year
  Sex: Female
  Weight: 108.86 kg

DRUGS (3)
  1. VABYSMO [Suspect]
     Active Substance: FARICIMAB\FARICIMAB-SVOA
     Indication: Neovascular age-related macular degeneration
     Route: 031
     Dates: start: 20231004, end: 20231004
  2. PREDNISONE [Concomitant]
     Active Substance: PREDNISONE
     Indication: Inflammation
     Route: 048
  3. MOUNJARO [Concomitant]
     Active Substance: TIRZEPATIDE
     Indication: Diabetes mellitus

REACTIONS (6)
  - Balance disorder [Recovering/Resolving]
  - Tremor [Recovering/Resolving]
  - Visual impairment [Recovering/Resolving]
  - Night blindness [Recovering/Resolving]
  - Rash [Recovered/Resolved]
  - Acne [Recovered/Resolved]

NARRATIVE: CASE EVENT DATE: 20231004
